FAERS Safety Report 14476666 (Version 1)
Quarter: 2018Q1

REPORT INFORMATION
  Report Type: Spontaneous
  Country: FR (occurrence: FR)
  Receive Date: 20180201
  Receipt Date: 20180201
  Transmission Date: 20180509
  Serious: Yes (Disabling)
  Sender: FDA-Public Use
  Company Number: FR-ACORDA-ACO_146336_2018

PATIENT
  Age: 53 Year
  Sex: Female
  Weight: 47 kg

DRUGS (1)
  1. QUTENZA [Suspect]
     Active Substance: CAPSAICIN
     Indication: PAIN
     Dosage: 1 DF, UNK
     Route: 062
     Dates: start: 20170705, end: 20170705

REACTIONS (1)
  - Muscle atrophy [Recovered/Resolved with Sequelae]

NARRATIVE: CASE EVENT DATE: 20170709
